FAERS Safety Report 16277754 (Version 2)
Quarter: 2019Q2

REPORT INFORMATION
  Report Type: Spontaneous
  Country: US (occurrence: US)
  Receive Date: 20190506
  Receipt Date: 20190517
  Transmission Date: 20190711
  Serious: No
  Sender: FDA-Public Use
  Company Number: US-MERZ NORTH AMERICA, INC.-19MRZ-00203

PATIENT
  Sex: Female

DRUGS (2)
  1. XEOMIN [Suspect]
     Active Substance: INCOBOTULINUMTOXINA
     Dosage: 19 UNITS
  2. XEOMIN [Suspect]
     Active Substance: INCOBOTULINUMTOXINA
     Indication: SKIN COSMETIC PROCEDURE
     Dosage: 34 UNITS

REACTIONS (1)
  - Drug ineffective [Unknown]
